FAERS Safety Report 10362838 (Version 1)
Quarter: 2014Q3

REPORT INFORMATION
  Report Type: Spontaneous
  Country: GB (occurrence: GB)
  Receive Date: 20140805
  Receipt Date: 20140805
  Transmission Date: 20150326
  Serious: Yes (Other)
  Sender: FDA-Public Use
  Company Number: GB-TEVA-497913ISR

PATIENT
  Age: 76 Year
  Sex: Male
  Weight: 127 kg

DRUGS (14)
  1. NASONEX [Concomitant]
     Active Substance: MOMETASONE FUROATE
     Dosage: TWO SPRAYS INTO EACH NOSTRIL TWICE DAILY.
  2. AMITRIPTYLINE [Concomitant]
     Active Substance: AMITRIPTYLINE
     Dosage: TAKE AT NIGHT.
  3. OMEPRAZOLE. [Concomitant]
     Active Substance: OMEPRAZOLE
     Route: 048
  4. SIMVASTATIN. [Concomitant]
     Active Substance: SIMVASTATIN
     Dosage: TAKEN AT NIGHT
  5. FUROSEMIDE. [Concomitant]
     Active Substance: FUROSEMIDE
  6. RAMIPRIL. [Concomitant]
     Active Substance: RAMIPRIL
  7. ZAPAIN [Concomitant]
     Active Substance: ACETAMINOPHEN\CODEINE PHOSPHATE
     Dosage: 30MG AND 500MG. 1-2 FOUR TIMES DAILY AS REQUIRED.
  8. BISOPROLOL [Concomitant]
     Active Substance: BISOPROLOL
  9. FERROUS FUMARATE [Concomitant]
     Active Substance: FERROUS FUMARATE
  10. WARFARIN [Suspect]
     Active Substance: WARFARIN
     Indication: ATRIAL FIBRILLATION
     Dosage: 3MG OR PER INR
     Dates: start: 20130816, end: 20130817
  11. MOVELAT [Concomitant]
     Dosage: APPLY 2-3 TIMES A DAY.
  12. RIVAROXABAN [Concomitant]
     Active Substance: RIVAROXABAN
  13. QVAR [Concomitant]
     Active Substance: BECLOMETHASONE DIPROPIONATE
     Route: 055
  14. GLYCERYL TRINITRATE [Concomitant]
     Active Substance: NITROGLYCERIN
     Dosage: USE ONE OR TWO SPRAYS UNDER THE TONGUE WHEN REQUIRED.

REACTIONS (1)
  - Vasculitis necrotising [Recovered/Resolved]

NARRATIVE: CASE EVENT DATE: 20130817
